FAERS Safety Report 15686665 (Version 3)
Quarter: 2019Q1

REPORT INFORMATION
  Report Type: Spontaneous
  Country: BR (occurrence: BR)
  Receive Date: 20181204
  Receipt Date: 20190102
  Transmission Date: 20190417
  Serious: Yes (Life-Threatening, Hospitalization, Other)
  Sender: FDA-Public Use
  Company Number: BR-MYLANLABS-2018M1090410

PATIENT
  Age: 27 Year
  Sex: Male

DRUGS (7)
  1. ESTRADIOL. [Suspect]
     Active Substance: ESTRADIOL
     Indication: FEMINISATION ACQUIRED
     Dosage: 7.1 MILLIGRAM FOR 15 DAYS
  2. ALGESTONE [Concomitant]
     Active Substance: ALGESTONE
     Indication: FEMINISATION ACQUIRED
     Dosage: 115.9 MILLIGRAM
  3. METHYLPREDNISOLONE. [Concomitant]
     Active Substance: METHYLPREDNISOLONE
     Dosage: UNK
  4. PREDNISOLONE. [Concomitant]
     Active Substance: PREDNISOLONE
     Dosage: UNK
  5. CYCLOPHOSPHAMIDE. [Concomitant]
     Active Substance: CYCLOPHOSPHAMIDE
     Dosage: UNK
  6. MEDROXYPROGESTERONE [Concomitant]
     Active Substance: MEDROXYPROGESTERONE
     Indication: FEMINISATION ACQUIRED
     Dosage: 50 MILLIGRAM IN ONE DAY FR 9 YEARS
  7. MYCOPHENOLATE MOFETIL. [Concomitant]
     Active Substance: MYCOPHENOLATE MOFETIL
     Dosage: UNK

REACTIONS (4)
  - Photosensitivity reaction [Recovered/Resolved]
  - Systemic lupus erythematosus [Recovered/Resolved]
  - Off label use [Unknown]
  - Lupus nephritis [Recovered/Resolved]
